FAERS Safety Report 5955819-2 (Version None)
Quarter: 2008Q4

REPORT INFORMATION
  Report Type: 
  Country: None (occurrence: None)
  Receive Date: 20081117
  Receipt Date: 20081105
  Transmission Date: 20090506
  Serious: Yes (Life-Threatening, Hospitalization)
  Sender: FDA-Public Use
  Company Number: PL-PFIZER INC-2008093844

PATIENT
  Sex: Male
  Weight: 112 kg

DRUGS (5)
  1. SU-011,248 [Suspect]
     Indication: GASTROINTESTINAL STROMAL TUMOUR
     Route: 048
     Dates: start: 20060410, end: 20080720
  2. SU-011,248 [Suspect]
     Route: 048
     Dates: start: 20080729
  3. RAMIPRIL [Concomitant]
     Dates: start: 20080729, end: 20080911
  4. FUROSEMID [Concomitant]
     Dates: start: 20080729, end: 20080911
  5. NITRENDIPINE [Concomitant]
     Dates: start: 20070423, end: 20080911

REACTIONS (2)
  - MYOCARDIAL ISCHAEMIA [None]
  - VENTRICULAR ARRHYTHMIA [None]
